FAERS Safety Report 6891500-3 (Version None)
Quarter: 2010Q3

REPORT INFORMATION
  Report Type: 
  Country: None (occurrence: None)
  Receive Date: 20100731
  Receipt Date: 20071003
  Transmission Date: 20110219
  Serious: No
  Sender: FDA-Public Use
  Company Number: US-PFIZER INC-2007022698

PATIENT
  Sex: Female
  Weight: 40.82 kg

DRUGS (1)
  1. NEURONTIN [Suspect]
     Indication: HEADACHE
     Route: 048
     Dates: start: 20070105, end: 20070319

REACTIONS (5)
  - ABDOMINAL PAIN UPPER [None]
  - DECREASED APPETITE [None]
  - DIARRHOEA [None]
  - NAUSEA [None]
  - WEIGHT DECREASED [None]
